FAERS Safety Report 21297030 (Version 2)
Quarter: 2023Q2

REPORT INFORMATION
  Report Type: Spontaneous
  Country: ES (occurrence: ES)
  Receive Date: 20220906
  Receipt Date: 20230605
  Transmission Date: 20230722
  Serious: Yes (Death)
  Sender: FDA-Public Use
  Company Number: None

PATIENT
  Age: 44 Year
  Sex: Female

DRUGS (11)
  1. PANTOPRAZOLE [Suspect]
     Active Substance: PANTOPRAZOLE
     Indication: Product used for unknown indication
     Dosage: PANTOPRAZOL (7275A)
     Route: 065
     Dates: start: 20220414
  2. MICAFUNGIN [Suspect]
     Active Substance: MICAFUNGIN SODIUM
     Indication: Product used for unknown indication
     Dosage: MICAFUNGINA SODICA (8263SO)
     Dates: start: 20220215
  3. FUROSEMIDE [Suspect]
     Active Substance: FUROSEMIDE
     Indication: Product used for unknown indication
     Dosage: FUROSEMIDA (1615A)
     Dates: start: 20220420, end: 20220530
  4. MEROPENEM [Suspect]
     Active Substance: MEROPENEM
     Indication: Product used for unknown indication
     Dosage: MEROPENEM (7155A)
     Dates: start: 20220329, end: 20220518
  5. CELLCEPT [Suspect]
     Active Substance: MYCOPHENOLATE MOFETIL
     Indication: Lung transplant
     Dosage: 50 TABLETS
     Dates: start: 20220507, end: 20220516
  6. PROGRAF [Suspect]
     Active Substance: TACROLIMUS
     Indication: Lung transplant
     Dosage: 30 CAPSULES
     Dates: start: 20220215
  7. SULFAMETHOXAZOLE\TRIMETHOPRIM [Suspect]
     Active Substance: SULFAMETHOXAZOLE\TRIMETHOPRIM
     Indication: Lung transplant
     Dosage: SULFAMETOXAZOL + TRIMETOPRIMA
     Dates: start: 20220414, end: 20220516
  8. GANCICLOVIR [Suspect]
     Active Substance: GANCICLOVIR
     Indication: Cytomegalovirus infection reactivation
     Dosage: GANCICLOVIR (2370A)
     Dates: start: 20220318, end: 20220518
  9. ERYTHROMYCIN LACTOBIONATE [Concomitant]
     Active Substance: ERYTHROMYCIN LACTOBIONATE
     Indication: Antibiotic therapy
     Dosage: ERITROMICINA LACTOBIONATO (1419LC)
     Dates: start: 20220505, end: 20220512
  10. AMBISOME LIPOSOMAL [Concomitant]
     Indication: Product used for unknown indication
     Dosage: 10 VIALS
     Dates: start: 20220414, end: 20220519
  11. DAPTOMYCIN [Concomitant]
     Active Substance: DAPTOMYCIN
     Indication: Product used for unknown indication
     Dosage: DAPTOMICINA (7068A)
     Dates: start: 20220303, end: 20220519

REACTIONS (2)
  - Agranulocytosis [Fatal]
  - Leukopenia [Fatal]

NARRATIVE: CASE EVENT DATE: 20220513
